FAERS Safety Report 21490556 (Version 1)
Quarter: 2022Q4

REPORT INFORMATION
  Report Type: Spontaneous
  Country: US (occurrence: None)
  Receive Date: 20221020
  Receipt Date: 20221020
  Transmission Date: 20230112
  Serious: No
  Sender: FDA-Public Use
  Company Number: None

PATIENT
  Age: 68 Year
  Sex: Male
  Weight: 68.49 kg

DRUGS (21)
  1. KEYTRUDA [Suspect]
     Active Substance: PEMBROLIZUMAB
     Indication: Prostate cancer
     Dosage: OTHER FREQUENCY : Q21 DAYS;?
     Route: 042
  2. ACETAMINOPHEN-CODEINE#3 [Concomitant]
  3. ANKNZEO [Concomitant]
  4. AMLODIPINE [Concomitant]
     Active Substance: AMLODIPINE BESYLATE
  5. ASPIRIN [Concomitant]
     Active Substance: ASPIRIN
  6. ATORVASTATIN [Concomitant]
     Active Substance: ATORVASTATIN
  7. DORZOLAMIDE [Concomitant]
     Active Substance: DORZOLAMIDE
  8. FOLIC ACID [Concomitant]
     Active Substance: FOLIC ACID
  9. JANUVIA [Concomitant]
     Active Substance: SITAGLIPTIN PHOSPHATE
  10. LATANOPROST [Concomitant]
     Active Substance: LATANOPROST
  11. LISINOPRIL AND HYDROCHLOROTHIAZIDE [Concomitant]
     Active Substance: HYDROCHLOROTHIAZIDE\LISINOPRIL
  12. METFORMIN [Concomitant]
     Active Substance: METFORMIN HYDROCHLORIDE
  13. METOPROLOL [Concomitant]
     Active Substance: METOPROLOL
  14. MS CONTIN [Concomitant]
     Active Substance: MORPHINE SULFATE
  15. OMEPRAZOLE [Concomitant]
     Active Substance: OMEPRAZOLE
  16. PANTOPRAZOLE [Concomitant]
     Active Substance: PANTOPRAZOLE
  17. PEMFEXY [Concomitant]
     Active Substance: PEMETREXED MONOHYDRATE
  18. PREDNISONE [Concomitant]
     Active Substance: PREDNISONE
  19. TAMSULOSIN [Concomitant]
     Active Substance: TAMSULOSIN
  20. TRAMADOL [Concomitant]
     Active Substance: TRAMADOL
  21. VITAMIN D3 [Concomitant]
     Active Substance: CHOLECALCIFEROL

REACTIONS (1)
  - Drug intolerance [None]
